FAERS Safety Report 25625841 (Version 1)
Quarter: 2025Q3

REPORT INFORMATION
  Report Type: Spontaneous
  Country: US (occurrence: US)
  Receive Date: 20250731
  Receipt Date: 20250731
  Transmission Date: 20251020
  Serious: No
  Sender: ROCHE
  Company Number: US-ROCHE-10000349294

PATIENT
  Sex: Female

DRUGS (1)
  1. OCREVUS [Suspect]
     Active Substance: OCRELIZUMAB
     Indication: Multiple sclerosis
     Dosage: 500 ML 0.9 % NORMAL SALINE?FORM STRENGTH: 300 MG/10 ML
     Route: 042
     Dates: start: 202205

REACTIONS (2)
  - Fatigue [Unknown]
  - Pain [Unknown]
